FAERS Safety Report 7879685-3 (Version None)
Quarter: 2011Q4

REPORT INFORMATION
  Report Type: 
  Country: None (occurrence: None)
  Receive Date: 20111101
  Receipt Date: 20110812
  Transmission Date: 20120403
  Serious: No
  Sender: FDA-Public Use
  Company Number: US-ABBOTT-11P-163-0846117-00

PATIENT
  Sex: Male
  Weight: 64.9 kg

DRUGS (3)
  1. BIAXIN [Suspect]
     Indication: LYME DISEASE
     Route: 048
     Dates: start: 20070101
  2. RAPAFLO [Interacting]
     Indication: LYME DISEASE
     Route: 048
     Dates: start: 20100101, end: 20110420
  3. RAPAFLO [Interacting]
     Indication: BENIGN PROSTATIC HYPERPLASIA
     Route: 048
     Dates: start: 20110421, end: 20110516

REACTIONS (2)
  - DYSPNOEA [None]
  - DRUG INTERACTION [None]
